FAERS Safety Report 5122927-8 (Version None)
Quarter: 2006Q4

REPORT INFORMATION
  Report Type: 
  Country: None (occurrence: None)
  Receive Date: 20061005
  Receipt Date: 20060920
  Transmission Date: 20070319
  Serious: Yes (Life-Threatening)
  Sender: FDA-Public Use
  Company Number: 2006S1007047

PATIENT
  Age: 54 Year
  Sex: Male
  Weight: 99.7913 kg

DRUGS (10)
  1. FENTANYL TRANSDERMAL SYSTEM [Suspect]
     Indication: BONE PAIN
     Dosage: 25 UG/HR;Q3D;TDER
     Route: 062
     Dates: start: 20060401, end: 20060501
  2. FENTANYL TRANSDERMAL SYSTEM [Suspect]
     Indication: PAIN
     Dosage: 25 UG/HR;Q3D;TDER
     Route: 062
     Dates: start: 20060401, end: 20060501
  3. FENTANYL TRANSDERMAL SYSTEM [Suspect]
     Indication: BONE PAIN
     Dosage: 50 UG/HR;Q3D;TDER
     Route: 062
     Dates: start: 20060501, end: 20060601
  4. FENTANYL TRANSDERMAL SYSTEM [Suspect]
     Indication: PAIN
     Dosage: 50 UG/HR;Q3D;TDER
     Route: 062
     Dates: start: 20060501, end: 20060601
  5. FENTANYL TRANSDERMAL SYSTEM [Suspect]
     Indication: BONE PAIN
     Dosage: 75 U/HR;Q3D; TDER; 75 UG/HR;QOD;TDER
     Route: 062
     Dates: start: 20060601, end: 20060701
  6. FENTANYL TRANSDERMAL SYSTEM [Suspect]
     Indication: PAIN
     Dosage: 75 U/HR;Q3D; TDER; 75 UG/HR;QOD;TDER
     Route: 062
     Dates: start: 20060601, end: 20060701
  7. FENTANYL TRANSDERMAL SYSTEM [Suspect]
     Indication: BONE PAIN
     Dosage: 75 U/HR;Q3D; TDER; 75 UG/HR;QOD;TDER
     Route: 062
     Dates: start: 20060701, end: 20060823
  8. FENTANYL TRANSDERMAL SYSTEM [Suspect]
     Indication: PAIN
     Dosage: 75 U/HR;Q3D; TDER; 75 UG/HR;QOD;TDER
     Route: 062
     Dates: start: 20060701, end: 20060823
  9. FENTANYL TRANSDERMAL SYSTEM [Suspect]
     Indication: BONE PAIN
     Dosage: 100 UG/HR;QOD;TDER
     Route: 062
     Dates: start: 20060823, end: 20060906
  10. FENTANYL TRANSDERMAL SYSTEM [Suspect]
     Indication: PAIN
     Dosage: 100 UG/HR;QOD;TDER
     Route: 062
     Dates: start: 20060823, end: 20060906

REACTIONS (3)
  - DRUG EFFECT DECREASED [None]
  - PHARMACEUTICAL PRODUCT COMPLAINT [None]
  - THERAPEUTIC RESPONSE UNEXPECTED WITH DRUG SUBSTITUTION [None]
